FAERS Safety Report 7157889-5 (Version None)
Quarter: 2010Q4

REPORT INFORMATION
  Report Type: 
  Country: None (occurrence: None)
  Receive Date: 20101214
  Receipt Date: 20101209
  Transmission Date: 20110411
  Serious: Yes (Hospitalization)
  Sender: FDA-Public Use
  Company Number: IT-MERCK-1012ITA00123

PATIENT
  Age: 75 Year
  Sex: Female

DRUGS (3)
  1. ZOCOR [Suspect]
     Indication: MYOCARDIAL ISCHAEMIA
     Route: 048
     Dates: start: 20101118, end: 20101124
  2. DANAZOL [Concomitant]
     Indication: HEREDITARY ANGIOEDEMA
     Route: 065
  3. INFLUENZA VIRUS SPLIT VIRION 3V VACCINE INACTIVATED [Concomitant]
     Route: 065

REACTIONS (1)
  - RENAL FAILURE ACUTE [None]
